FAERS Safety Report 14745597 (Version 1)
Quarter: 2018Q2

REPORT INFORMATION
  Report Type: Spontaneous
  Country: JP (occurrence: JP)
  Receive Date: 20180411
  Receipt Date: 20180411
  Transmission Date: 20180711
  Serious: Yes (Death, Other)
  Sender: FDA-Public Use
  Company Number: JP-MYLANLABS-2018M1024111

PATIENT
  Age: 63 Year
  Sex: Female

DRUGS (3)
  1. DOCETAXEL. [Suspect]
     Active Substance: DOCETAXEL
     Indication: UTERINE CANCER
     Dosage: 70MG/M2 THRICE A WEEK
     Route: 065
  2. CARBOPLATIN. [Suspect]
     Active Substance: CARBOPLATIN
     Indication: UTERINE CANCER
     Dosage: ADMINISTERED AS AUC 5 WITH PACLITAXEL AND LATER WITH DOCETAXEL
     Route: 065
  3. PACLITAXEL. [Suspect]
     Active Substance: PACLITAXEL
     Indication: UTERINE CANCER
     Route: 065

REACTIONS (6)
  - Obstructive shock [Unknown]
  - Tumour lysis syndrome [Fatal]
  - Tumour embolism [Fatal]
  - Acute kidney injury [Unknown]
  - Pulmonary embolism [Fatal]
  - Neuropathy peripheral [Unknown]
